FAERS Safety Report 8499608-6 (Version None)
Quarter: 2012Q3

REPORT INFORMATION
  Report Type: 
  Country: None (occurrence: None)
  Receive Date: 20120710
  Receipt Date: 20120702
  Transmission Date: 20120928
  Serious: Yes (Other)
  Sender: FDA-Public Use
  Company Number: NL-JNJFOC-20120611212

PATIENT

DRUGS (7)
  1. BORTEZOMIB [Suspect]
     Indication: MULTIPLE MYELOMA
     Dosage: DAYS 1,4,8,11  1.3 MG/M2, 2 WEEKLY MAINTENACE DOSE IN ARM B
     Route: 065
  2. VINCRISTINE [Suspect]
     Indication: MULTIPLE MYELOMA
     Route: 065
  3. ADRIAMYCIN PFS [Suspect]
     Indication: MULTIPLE MYELOMA
     Route: 065
  4. DOXORUBICIN HYDROCHLORIDE [Suspect]
     Indication: MULTIPLE MYELOMA
     Dosage: DAY 1-4
     Route: 042
  5. DEXAMETHASONE [Suspect]
     Indication: MULTIPLE MYELOMA
     Dosage: DAYS 1-4, 9-12, 17-20 (PAD)  OR UNSPECIFIED DOSE IN VAD
     Route: 065
  6. THALIDOMIDE [Concomitant]
     Indication: MULTIPLE MYELOMA
     Dosage: MAINTENANCE DOSE: 50 MG DAILY IN ARM A
     Route: 065
  7. MELPHALAN HYDROCHLORIDE [Suspect]
     Indication: MULTIPLE MYELOMA
     Dosage: ONE HOVON OR TWO GMMG HIGH DOSE MELPHALAN WITH AUTOLOGOUS STEM CELL TRANSPALNT
     Route: 065

REACTIONS (6)
  - ADVERSE EVENT [None]
  - TOXICITY TO VARIOUS AGENTS [None]
  - MULTIPLE MYELOMA [None]
  - CYTOGENETIC ABNORMALITY [None]
  - BLOOD CREATININE ABNORMAL [None]
  - POLYNEUROPATHY [None]
